FAERS Safety Report 6314400-6 (Version None)
Quarter: 2009Q3

REPORT INFORMATION
  Report Type: 
  Country: None (occurrence: None)
  Receive Date: 20090819
  Receipt Date: 20090812
  Transmission Date: 20100115
  Serious: Yes (Other)
  Sender: FDA-Public Use
  Company Number: US-ROCHE-650289

PATIENT
  Age: 21 Year
  Sex: Female

DRUGS (1)
  1. KLONOPIN [Suspect]
     Indication: DRUG USE FOR UNKNOWN INDICATION
     Route: 065

REACTIONS (3)
  - ASTHENIA [None]
  - HYPERSOMNIA [None]
  - HYPOTHYROIDISM [None]
